FAERS Safety Report 10072679 (Version 1)
Quarter: 2014Q2

REPORT INFORMATION
  Report Type: Report from Study
  Country: BR (occurrence: BR)
  Receive Date: 20140411
  Receipt Date: 20140411
  Transmission Date: 20141212
  Serious: Yes (Hospitalization, Other)
  Sender: FDA-Public Use
  Company Number: PHHY2014BR042340

PATIENT
  Age: 78 Year
  Sex: Female
  Weight: 72 kg

DRUGS (4)
  1. ONBREZ [Suspect]
     Indication: EMPHYSEMA
     Dosage: 1 DF, IN THE MORNING (APPROXIMATELY 3 YEARS AGO)
     Route: 055
  2. FORASEQ [Suspect]
     Indication: BRONCHITIS
     Dosage: 1 DF, IN THE MORNING
     Route: 055
  3. FORASEQ [Suspect]
     Indication: OFF LABEL USE
  4. BENICAR [Concomitant]
     Indication: BLOOD PRESSURE ABNORMAL
     Dosage: 40 MG, UNK

REACTIONS (3)
  - Cerebrovascular accident [Unknown]
  - Coordination abnormal [Unknown]
  - Balance disorder [Unknown]
